FAERS Safety Report 16965067 (Version 1)
Quarter: 2019Q4

REPORT INFORMATION
  Report Type: Spontaneous
  Country: IL (occurrence: IL)
  Receive Date: 20191028
  Receipt Date: 20191028
  Transmission Date: 20200122
  Serious: Yes (Other)
  Sender: FDA-Public Use
  Company Number: IL-009507513-1910ISR015087

PATIENT
  Age: 72 Year
  Sex: Male

DRUGS (1)
  1. RIZALT [Suspect]
     Active Substance: RIZATRIPTAN BENZOATE
     Dosage: STRENGTH:10 MG TABLET, UNK

REACTIONS (3)
  - Paralysis [Unknown]
  - Muscular weakness [Unknown]
  - Hypoaesthesia [Unknown]
